FAERS Safety Report 13546323 (Version 1)
Quarter: 2017Q2

REPORT INFORMATION
  Report Type: Spontaneous
  Country: US (occurrence: US)
  Receive Date: 20170515
  Receipt Date: 20170515
  Transmission Date: 20170830
  Serious: No
  Sender: FDA-Public Use
  Company Number: US-SUNOVION-2017SUN002001

PATIENT

DRUGS (4)
  1. HALDOL [Concomitant]
     Active Substance: HALOPERIDOL
  2. LATUDA [Suspect]
     Active Substance: LURASIDONE HYDROCHLORIDE
     Dosage: UNK
     Route: 048
  3. FANAPT [Concomitant]
     Active Substance: ILOPERIDONE
  4. LITHIUM. [Concomitant]
     Active Substance: LITHIUM

REACTIONS (1)
  - Abdominal discomfort [Unknown]
